FAERS Safety Report 6507560-5 (Version None)
Quarter: 2009Q4

REPORT INFORMATION
  Report Type: 
  Country: None (occurrence: None)
  Receive Date: 20091221
  Receipt Date: 20091209
  Transmission Date: 20100525
  Serious: Yes (Other)
  Sender: FDA-Public Use
  Company Number: JP-BRISTOL-MYERS SQUIBB COMPANY-14891857

PATIENT
  Age: 77 Year
  Sex: Female

DRUGS (2)
  1. KENACORT [Suspect]
     Indication: MACULAR OEDEMA
     Route: 031
  2. ANTIBIOTICS [Suspect]

REACTIONS (3)
  - ANAPHYLACTIC SHOCK [None]
  - CELLULITIS ORBITAL [None]
  - NECROTISING SCLERITIS [None]
